FAERS Safety Report 8433729-9 (Version None)
Quarter: 2012Q2

REPORT INFORMATION
  Report Type: 
  Country: None (occurrence: None)
  Receive Date: 20120613
  Receipt Date: 20120604
  Transmission Date: 20120825
  Serious: Yes (Hospitalization, Disabling)
  Sender: FDA-Public Use
  Company Number: US-ELI_LILLY_AND_COMPANY-US201205009691

PATIENT
  Sex: Female

DRUGS (1)
  1. HUMALOG MIX 75/25 [Suspect]
     Indication: DIABETES MELLITUS
     Dosage: UNK

REACTIONS (11)
  - STRESS [None]
  - OEDEMA PERIPHERAL [None]
  - BLOOD GLUCOSE ABNORMAL [None]
  - LOCALISED INFECTION [None]
  - DAWN PHENOMENON [None]
  - DIABETES MELLITUS INADEQUATE CONTROL [None]
  - WEIGHT DECREASED [None]
  - SKIN ULCER [None]
  - GLYCOSYLATED HAEMOGLOBIN INCREASED [None]
  - DRUG INEFFECTIVE [None]
  - BODY FAT DISORDER [None]
